FAERS Safety Report 4955767-0 (Version None)
Quarter: 2006Q1

REPORT INFORMATION
  Report Type: 
  Country: None (occurrence: None)
  Receive Date: 20060328
  Receipt Date: 20060320
  Transmission Date: 20060701
  Serious: Yes (Other)
  Sender: FDA-Public Use
  Company Number: GB-JNJFOC-20060304826

PATIENT
  Sex: Female
  Weight: 82 kg

DRUGS (8)
  1. REMICADE [Suspect]
     Indication: RHEUMATOID ARTHRITIS
     Route: 042
  2. METHOTREXATE [Concomitant]
     Route: 065
  3. PREDNISOLONE [Concomitant]
     Route: 065
  4. ATENOLOL [Concomitant]
     Route: 065
  5. BENDROFLUAZIDE [Concomitant]
     Route: 065
  6. CO-DYDRAMOL [Concomitant]
     Route: 065
  7. CO-DYDRAMOL [Concomitant]
     Route: 065
  8. DIDRONEL [Concomitant]
     Route: 065

REACTIONS (1)
  - LUNG NEOPLASM [None]
